FAERS Safety Report 9843407 (Version 1)
Quarter: 2013Q4

REPORT INFORMATION
  Report Type: Spontaneous
  Country: US (occurrence: None)
  Receive Date: 20131219
  Receipt Date: 20131219
  Transmission Date: 20140711
  Serious: Yes (Death, Hospitalization)
  Sender: FDA-Public Use
  Company Number: 163-20785-13073925

PATIENT
  Age: 63 Year
  Sex: Female
  Weight: 86.7 kg

DRUGS (7)
  1. THALOMID (THALIDOMIDE) (100 MILLIGRAM, CAPSULES) [Suspect]
     Indication: PLASMA CELL MYELOMA
     Dosage: 1 IN 1 D
     Route: 048
     Dates: start: 201301
  2. BORTEZOMIB [Concomitant]
  3. DEXAMETHASONE [Concomitant]
  4. CISPLATIN [Concomitant]
  5. DOXORUBICIN [Concomitant]
  6. CYCLOPHOSPHAMIDE [Concomitant]
  7. ETOPOSIDE [Concomitant]

REACTIONS (4)
  - Death [None]
  - Pain [None]
  - Plasma cell myeloma [None]
  - Hypoaesthesia [None]
